FAERS Safety Report 11040534 (Version 2)
Quarter: 2015Q2

REPORT INFORMATION
  Report Type: Spontaneous
  Country: US (occurrence: US)
  Receive Date: 20150416
  Receipt Date: 20150602
  Transmission Date: 20150821
  Serious: No
  Sender: FDA-Public Use
  Company Number: US-009507513-1503USA013529

PATIENT
  Age: 5 Month
  Sex: Male

DRUGS (1)
  1. PROVENTIL [Suspect]
     Active Substance: ALBUTEROL
     Indication: DYSPNOEA
     Dosage: PRN, TOTAL DAILY DOSE: UP TO 8 INHALATIONS
     Route: 048
     Dates: start: 20150226

REACTIONS (5)
  - No adverse event [Unknown]
  - Product quality issue [Unknown]
  - Incorrect route of drug administration [Unknown]
  - Drug administration error [Unknown]
  - Drug administered to patient of inappropriate age [Unknown]

NARRATIVE: CASE EVENT DATE: 20150226
